FAERS Safety Report 5978173-9 (Version None)
Quarter: 2008Q4

REPORT INFORMATION
  Report Type: 
  Country: None (occurrence: None)
  Receive Date: 20081126
  Receipt Date: 20081113
  Transmission Date: 20090506
  Serious: Yes (Hospitalization)
  Sender: FDA-Public Use
  Company Number: KV200800255

PATIENT
  Age: 85 Year
  Sex: Female
  Weight: 64.4 kg

DRUGS (6)
  1. ISOSORBIDE MONONITRATE [Suspect]
     Indication: CARDIAC FAILURE CONGESTIVE
     Dosage: 60 MG, QD, ORAL
     Route: 048
  2. PLAVIX [Concomitant]
  3. METOPROLOL TARTRATE [Concomitant]
  4. SYNTHROID [Concomitant]
  5. FUROSEMIDE [Concomitant]
  6. HYDRALAZINE (HYDRAZALINE) [Concomitant]

REACTIONS (5)
  - ACTIVITIES OF DAILY LIVING IMPAIRED [None]
  - ASTHENIA [None]
  - FATIGUE [None]
  - HYPERTENSION [None]
  - PRODUCT QUALITY ISSUE [None]
